FAERS Safety Report 25051318 (Version 1)
Quarter: 2025Q1

REPORT INFORMATION
  Report Type: Spontaneous
  Country: FR (occurrence: FR)
  Receive Date: 20250307
  Receipt Date: 20250307
  Transmission Date: 20250409
  Serious: Yes (Death)
  Sender: TEVA
  Company Number: None

PATIENT
  Age: 78 Year
  Sex: Male
  Weight: 80 kg

DRUGS (3)
  1. IRBESARTAN [Interacting]
     Active Substance: IRBESARTAN
     Indication: Hypertension
     Route: 048
     Dates: end: 20250203
  2. HYDROCHLOROTHIAZIDE [Interacting]
     Active Substance: HYDROCHLOROTHIAZIDE
     Indication: Hypertension
     Route: 048
     Dates: end: 20250203
  3. GLUCOPHAGE [Interacting]
     Active Substance: METFORMIN HYDROCHLORIDE
     Indication: Type 2 diabetes mellitus
     Route: 048
     Dates: end: 20250203

REACTIONS (3)
  - Lactic acidosis [Fatal]
  - Accidental overdose [Fatal]
  - Drug interaction [Fatal]

NARRATIVE: CASE EVENT DATE: 20250203
